FAERS Safety Report 6477933-8 (Version None)
Quarter: 2009Q4

REPORT INFORMATION
  Report Type: 
  Country: None (occurrence: None)
  Receive Date: 20091207
  Receipt Date: 20091130
  Transmission Date: 20100525
  Serious: Yes (Hospitalization)
  Sender: FDA-Public Use
  Company Number: A0832279A

PATIENT
  Age: 45 Year
  Sex: Male

DRUGS (5)
  1. NABUMETONE [Suspect]
     Indication: DRUG USE FOR UNKNOWN INDICATION
     Dosage: 4TAB FOUR TIMES PER DAY
     Route: 048
     Dates: start: 20090602, end: 20090701
  2. MEDROL [Concomitant]
  3. CYMBALTA [Concomitant]
  4. PRILOSEC [Concomitant]
  5. LORTAB [Concomitant]

REACTIONS (15)
  - ABDOMINAL PAIN UPPER [None]
  - APPENDICECTOMY [None]
  - BACK PAIN [None]
  - DRUG DISPENSING ERROR [None]
  - DYSKINESIA [None]
  - HEADACHE [None]
  - LIVER FUNCTION TEST ABNORMAL [None]
  - MIGRAINE [None]
  - NERVOUS SYSTEM DISORDER [None]
  - OVERDOSE [None]
  - PAIN IN EXTREMITY [None]
  - PERIODIC LIMB MOVEMENT DISORDER [None]
  - RENAL FUNCTION TEST ABNORMAL [None]
  - TREMOR [None]
  - VISION BLURRED [None]
